FAERS Safety Report 9734875 (Version 1)
Quarter: 2013Q4

REPORT INFORMATION
  Report Type: Spontaneous
  Country: US (occurrence: US)
  Receive Date: 20131206
  Receipt Date: 20131206
  Transmission Date: 20140711
  Serious: Yes (Hospitalization)
  Sender: FDA-Public Use
  Company Number: US-ENDO PHARMACEUTICALS INC.-SPIR20120009

PATIENT
  Sex: Female
  Weight: 69.92 kg

DRUGS (1)
  1. SPIRONOLACTONE TABLETS [Suspect]
     Indication: ADRENAL DISORDER
     Dosage: UNKNOWN
     Route: 048
     Dates: start: 201011

REACTIONS (1)
  - Stevens-Johnson syndrome [Recovered/Resolved]
